FAERS Safety Report 25109492 (Version 1)
Quarter: 2025Q1

REPORT INFORMATION
  Report Type: Spontaneous
  Country: US (occurrence: US)
  Receive Date: 20250323
  Receipt Date: 20250323
  Transmission Date: 20250409
  Serious: No
  Sender: SANOFI AVENTIS
  Company Number: US-SA-2025SA083500

PATIENT
  Sex: Female
  Weight: 86.82 kg

DRUGS (18)
  1. DUPIXENT [Suspect]
     Active Substance: DUPILUMAB
     Indication: Neurodermatitis
     Dosage: 300 MG, QOW
     Route: 058
     Dates: start: 20241204
  2. VITAMIN D3 [Concomitant]
     Active Substance: CHOLECALCIFEROL
  3. MUPIROCIN [Concomitant]
     Active Substance: MUPIROCIN
  4. IPRATROPIUM BROMIDE [Concomitant]
     Active Substance: IPRATROPIUM BROMIDE
  5. WARFARIN SODIUM [Concomitant]
     Active Substance: WARFARIN SODIUM
  6. SPIRONOLACTONE [Concomitant]
     Active Substance: SPIRONOLACTONE
  7. FUROSEMIDE [Concomitant]
     Active Substance: FUROSEMIDE
  8. POTASSIUM CHLORIDE [Concomitant]
     Active Substance: POTASSIUM CHLORIDE
  9. CLONAZEPAM [Concomitant]
     Active Substance: CLONAZEPAM
  10. JARDIANCE [Concomitant]
     Active Substance: EMPAGLIFLOZIN
  11. RANOLAZINE [Concomitant]
     Active Substance: RANOLAZINE
  12. MONTELUKAST SODIUM [Concomitant]
     Active Substance: MONTELUKAST SODIUM
  13. SERTRALINE HYDROCHLORIDE [Concomitant]
     Active Substance: SERTRALINE HYDROCHLORIDE
  14. ATORVASTATIN CALCIUM [Concomitant]
     Active Substance: ATORVASTATIN CALCIUM
  15. DILTIAZEM [Concomitant]
     Active Substance: DILTIAZEM
  16. DISOPYRAMIDE PHOSPHATE [Concomitant]
     Active Substance: DISOPYRAMIDE PHOSPHATE
  17. TRIAMCINOLONE ACETONIDE [Concomitant]
     Active Substance: TRIAMCINOLONE ACETONIDE
  18. AMOXICILLIN [Concomitant]
     Active Substance: AMOXICILLIN

REACTIONS (1)
  - Drug ineffective [Unknown]
